FAERS Safety Report 12495808 (Version 2)
Quarter: 2016Q3

REPORT INFORMATION
  Report Type: Spontaneous
  Country: DE (occurrence: DE)
  Receive Date: 20160624
  Receipt Date: 20160802
  Transmission Date: 20161109
  Serious: Yes (Other)
  Sender: FDA-Public Use
  Company Number: DE-SUN PHARMACEUTICAL INDUSTRIES LTD-2016RR-119131

PATIENT
  Sex: Female
  Weight: 51 kg

DRUGS (8)
  1. ASS 100 [Concomitant]
     Active Substance: ASPIRIN
     Indication: PROPHYLAXIS
     Dosage: 100 MG, QD, GESTATIONAL WEEKS 12.4 - 30
     Route: 048
     Dates: start: 20150920, end: 20160120
  2. DOPEGYT [Concomitant]
     Active Substance: METHYLDOPA
     Indication: HYPERTENSION
     Dosage: 250 MG, QD, 22.6 - 28.4 GESTATIONAL WEEKS
     Route: 048
     Dates: start: 20151201, end: 20160110
  3. FRAGMIN P FORTE [Concomitant]
     Active Substance: DALTEPARIN SODIUM
     Indication: SYSTEMIC LUPUS ERYTHEMATOSUS
     Dosage: 5000 IU, QD, GESTATIONAL WEEKS 12.4-34.3
     Route: 058
     Dates: start: 20150920, end: 20160220
  4. FUROSEMID [Concomitant]
     Active Substance: FUROSEMIDE
     Indication: OLIGOHYDRAMNIOS
     Dosage: 20 MG, QD, GESTATIONAL WEEKS 34-34.2
     Route: 048
     Dates: start: 20160217, end: 20160219
  5. VALSARTAN. [Suspect]
     Active Substance: VALSARTAN
     Indication: HYPERTENSION
     Dosage: 160 MG, QD, 28.5-32.5 GESTATIONAL WEEKS
     Route: 048
     Dates: start: 20160111, end: 20160208
  6. FOLICOMBIN [Concomitant]
     Indication: PROPHYLAXIS OF NEURAL TUBE DEFECT
     Dosage: 0.5 MG, QD
     Route: 048
  7. CELESTAN [Concomitant]
     Active Substance: BETAMETHASONE
     Indication: MATERNAL THERAPY TO ENHANCE FOETAL LUNG MATURITY
     Dosage: 12 MG, QD, GESTATIONAL WEEKS 32.5-32.6
     Route: 030
     Dates: start: 20160208, end: 20160209
  8. DECORTIN [Concomitant]
     Active Substance: PREDNISONE
     Indication: SYSTEMIC LUPUS ERYTHEMATOSUS
     Dosage: UNK
     Route: 065

REACTIONS (1)
  - Oligohydramnios [Recovered/Resolved]
